FAERS Safety Report 9759598 (Version 1)
Quarter: 2013Q4

REPORT INFORMATION
  Report Type: Spontaneous
  Country: US (occurrence: US)
  Receive Date: 20131216
  Receipt Date: 20131216
  Transmission Date: 20140711
  Serious: No
  Sender: FDA-Public Use
  Company Number: US-GILEAD-2010-0028223

PATIENT
  Sex: Female
  Weight: 92.53 kg

DRUGS (18)
  1. LETAIRIS [Suspect]
     Indication: PULMONARY ARTERIAL HYPERTENSION
     Route: 048
     Dates: start: 20090909
  2. ZOCOR [Concomitant]
  3. LASIX [Concomitant]
  4. REVATIO [Concomitant]
  5. GABAPENTIN [Concomitant]
  6. NEXIUM [Concomitant]
  7. 20/20 EYE DROP [Concomitant]
  8. ALBUTEROL [Concomitant]
  9. VERAPAMIL [Concomitant]
  10. POTASSIUM CHLORIDE [Concomitant]
  11. SINGULAIR [Concomitant]
  12. LUMIGAN [Concomitant]
  13. PULMICORT [Concomitant]
  14. SPIRIVA [Concomitant]
  15. ASPIRIN [Concomitant]
  16. TRIAMTERENE [Concomitant]
  17. PREVACID [Concomitant]
  18. CALCIUM [Concomitant]

REACTIONS (1)
  - Sinusitis [Unknown]
